FAERS Safety Report 23825113 (Version 1)
Quarter: 2024Q2

REPORT INFORMATION
  Report Type: Spontaneous
  Country: PT (occurrence: PT)
  Receive Date: 20240507
  Receipt Date: 20240507
  Transmission Date: 20240716
  Serious: Yes (Other)
  Sender: FDA-Public Use
  Company Number: None

PATIENT
  Age: 72 Year
  Sex: Female

DRUGS (5)
  1. OLANZAPINE [Suspect]
     Active Substance: OLANZAPINE
     Route: 048
  2. QUETIAPINE [Concomitant]
     Active Substance: QUETIAPINE
  3. ABILIFY [Concomitant]
     Active Substance: ARIPIPRAZOLE
  4. BILOBAN [Concomitant]
     Route: 048
  5. Topamax25 [Concomitant]
     Route: 048

REACTIONS (1)
  - Parkinsonism [Unknown]
